FAERS Safety Report 8887193 (Version 2)
Quarter: 2012Q4

REPORT INFORMATION
  Report Type: Report from Study
  Country: US (occurrence: US)
  Receive Date: 20121105
  Receipt Date: 20121115
  Transmission Date: 20130627
  Serious: Yes (Hospitalization)
  Sender: FDA-Public Use
  Company Number: US-ELI_LILLY_AND_COMPANY-US201210008403

PATIENT
  Age: 52 Year
  Sex: Female
  Weight: 55.8 kg

DRUGS (10)
  1. GEMCITABINE HYDROCHLORIDE [Suspect]
     Indication: ADULT T-CELL LYMPHOMA/LEUKAEMIA
     Dosage: 1000 mg/m2, Days 1 and 15 each cycle
     Route: 042
     Dates: start: 20121009
  2. OXALIPLATIN [Suspect]
     Indication: ADULT T-CELL LYMPHOMA/LEUKAEMIA
     Dosage: 100 mg/m2, 28 day cycle
     Route: 042
     Dates: start: 20121009
  3. DILAUDID [Concomitant]
     Indication: PAIN
     Dosage: 1 mg, every 3 hrs, moderate pain
     Route: 042
     Dates: start: 20121010, end: 20121012
  4. DILAUDID [Concomitant]
     Dosage: 2 mg, every 3 hrs, severe pain
     Route: 042
     Dates: start: 20121010, end: 20121012
  5. DILAUDID [Concomitant]
     Dosage: 8 mg, every 3 hrs, severe pain
     Route: 048
     Dates: start: 20121012, end: 20121013
  6. DILAUDID [Concomitant]
     Dosage: 4 mg, every 3 hrs, moderate pain
     Route: 048
     Dates: start: 20121012, end: 20121013
  7. NEUPOGEN [Concomitant]
     Indication: FEBRILE NEUTROPENIA
     Dosage: UNK
     Dates: end: 20121007
  8. CEFEPIME [Concomitant]
     Dosage: UNK
     Dates: start: 20121009, end: 20121013
  9. IBUPROFEN [Concomitant]
  10. LEVAQUIN [Concomitant]
     Indication: PYREXIA
     Dosage: UNK
     Dates: start: 201210

REACTIONS (2)
  - Ileitis [Recovered/Resolved]
  - Pyrexia [Recovered/Resolved]
